FAERS Safety Report 4673325-2 (Version None)
Quarter: 2005Q2

REPORT INFORMATION
  Report Type: 
  Country: None (occurrence: None)
  Receive Date: 20050524
  Receipt Date: 20050524
  Transmission Date: 20051028
  Serious: Yes (Hospitalization)
  Sender: FDA-Public Use
  Company Number: None

PATIENT
  Age: 68 Year
  Sex: Male
  Weight: 95.2554 kg

DRUGS (14)
  1. PREDNISONE [Suspect]
     Indication: CRYPTOGENIC ORGANIZING PNEUMONIA
     Dosage: 60 MG ORALLY EVERY DAY
     Route: 048
     Dates: start: 20050228, end: 20050328
  2. DILTIAZEM [Concomitant]
  3. OMEPRAZOLE [Concomitant]
  4. DEXAMETHASONE [Concomitant]
  5. ONDANSETRON [Concomitant]
  6. BISACODYL [Concomitant]
  7. CALCIUM 500MG/ VITAMIN D [Concomitant]
  8. DIPHENHYDRAMINE HCL [Concomitant]
  9. EPOETIN ALPHA [Concomitant]
  10. GUAIFENESIN [Concomitant]
  11. IPRATROPIUM BROMIDE [Concomitant]
  12. SULFAMETHOXAZOLE 800/TRIMETHAPRIM [Concomitant]
  13. METFORMIN [Concomitant]
  14. ALBUTEROL [Concomitant]

REACTIONS (9)
  - ASTHENIA [None]
  - BLOOD GLUCOSE INCREASED [None]
  - BLOOD POTASSIUM INCREASED [None]
  - BLOOD SODIUM DECREASED [None]
  - DRY MOUTH [None]
  - HUNGER [None]
  - THIRST [None]
  - URINE OUTPUT INCREASED [None]
  - VISION BLURRED [None]
